FAERS Safety Report 7800012-1 (Version None)
Quarter: 2011Q4

REPORT INFORMATION
  Report Type: 
  Country: None (occurrence: None)
  Receive Date: 20111006
  Receipt Date: 20111004
  Transmission Date: 20120403
  Serious: Yes (Hospitalization)
  Sender: FDA-Public Use
  Company Number: JP-ABBOTT-11P-087-0852151-00

PATIENT
  Sex: Male
  Weight: 73 kg

DRUGS (9)
  1. MESALAMINE [Concomitant]
     Indication: CROHN'S DISEASE
     Route: 048
  2. LACTOMIN [Concomitant]
     Indication: CROHN'S DISEASE
     Dosage: 3GM DAILY
     Route: 048
  3. ALBUMIN TANNATE [Concomitant]
     Indication: CROHN'S DISEASE
     Route: 048
  4. HUMIRA [Suspect]
     Dates: start: 20110108
  5. POLAPREZINC [Concomitant]
     Indication: CROHN'S DISEASE
     Route: 048
  6. HUMIRA [Suspect]
     Indication: CROHN'S DISEASE
     Route: 058
     Dates: start: 20101211, end: 20101211
  7. HUMIRA [Suspect]
     Dates: start: 20101225, end: 20101225
  8. POLYCARBOPHIL CALCIUM [Concomitant]
     Indication: CROHN'S DISEASE
     Route: 048
  9. FAMOTIDINE [Concomitant]
     Indication: CROHN'S DISEASE
     Route: 048

REACTIONS (4)
  - CROHN'S DISEASE [None]
  - MELAENA [None]
  - DUODENAL ULCER [None]
  - DUODENAL ULCER HAEMORRHAGE [None]
